FAERS Safety Report 15739235 (Version 5)
Quarter: 2019Q2

REPORT INFORMATION
  Report Type: Spontaneous
  Country: US (occurrence: US)
  Receive Date: 20181219
  Receipt Date: 20190415
  Transmission Date: 20190711
  Serious: Yes (Hospitalization, Other)
  Sender: FDA-Public Use
  Company Number: US-BEH-2018097635

PATIENT
  Age: 58 Year
  Sex: Female
  Weight: 54.33 kg

DRUGS (14)
  1. OXYCONTIN [Concomitant]
     Active Substance: OXYCODONE HYDROCHLORIDE
     Dosage: 80 MG, UNK
     Route: 065
  2. LOSARTAN POTASICO [Concomitant]
     Active Substance: LOSARTAN
     Dosage: 100 MG, UNK
     Route: 065
  3. NITROFURANTOIN. [Concomitant]
     Active Substance: NITROFURANTOIN
     Dosage: 100 MG, UNK
     Route: 065
  4. VITAMIN D3 [Concomitant]
     Active Substance: CHOLECALCIFEROL
     Dosage: 50000 IU, UNK
     Route: 065
  5. HUMATE-P [Suspect]
     Active Substance: HUMAN COAGULATION FACTOR VIII/VON WILLEBRAND FACTOR COMPLEX
     Dosage: 3200 IU (1892+895+449=3236), BIW PRN
     Route: 042
     Dates: start: 201708
  6. HUMATE-P [Suspect]
     Active Substance: HUMAN COAGULATION FACTOR VIII/VON WILLEBRAND FACTOR COMPLEX
     Dosage: 3200 IU, BIW (DOSE = 1809+449+3153)
     Route: 042
     Dates: start: 201708
  7. TYLENOL [Concomitant]
     Active Substance: ACETAMINOPHEN
     Dosage: 500 MG, UNK
     Route: 065
  8. TRAMADOL HCL [Concomitant]
     Active Substance: TRAMADOL HYDROCHLORIDE
     Dosage: 50 MG, UNK
     Route: 065
  9. HUMATE-P [Suspect]
     Active Substance: HUMAN COAGULATION FACTOR VIII/VON WILLEBRAND FACTOR COMPLEX
     Indication: GASTROINTESTINAL HAEMORRHAGE
     Dosage: 3200 IU +/- 10% (DOSE=2X1/24=3448 OR 1756+1724=3480), PRN
     Route: 042
     Dates: start: 201806
  10. HUMATE-P [Suspect]
     Active Substance: HUMAN COAGULATION FACTOR VIII/VON WILLEBRAND FACTOR COMPLEX
     Dosage: 3200 IU (1841+895+449=3185), BIW PRN
     Route: 042
     Dates: start: 201707
  11. OXYCODONE [Concomitant]
     Active Substance: OXYCODONE
     Dosage: 325 MG, UNK
     Route: 065
  12. HYDROCHLOROTH [Concomitant]
     Active Substance: HYDROCHLOROTHIAZIDE
     Dosage: 12.5 MG, UNK
     Route: 065
  13. PANTOPRAZOLE [Concomitant]
     Active Substance: PANTOPRAZOLE
     Dosage: 40 MG, UNK
     Route: 065
  14. CYCLOBENZAPRINE. [Concomitant]
     Active Substance: CYCLOBENZAPRINE
     Dosage: 10 MG, UNK
     Route: 065

REACTIONS (9)
  - Weight decreased [Unknown]
  - Back pain [Not Recovered/Not Resolved]
  - Endocarditis bacterial [Recovered/Resolved]
  - Sepsis [Recovered/Resolved]
  - Pain [Unknown]
  - Nerve compression [Unknown]
  - Epistaxis [Recovered/Resolved]
  - Cardiac valve vegetation [Recovered/Resolved]
  - Bedridden [Unknown]

NARRATIVE: CASE EVENT DATE: 20181103
